FAERS Safety Report 16440247 (Version 3)
Quarter: 2020Q1

REPORT INFORMATION
  Report Type: Report from Study
  Country: US (occurrence: US)
  Receive Date: 20190617
  Receipt Date: 20200318
  Transmission Date: 20200409
  Serious: Yes (Death, Hospitalization, Other)
  Sender: FDA-Public Use
  Company Number: US-BAUSCH-BL-2019-017528

PATIENT
  Age: 68 Year
  Sex: Male
  Weight: 65.83 kg

DRUGS (3)
  1. LOTEMAX [Suspect]
     Active Substance: LOTEPREDNOL ETABONATE
     Indication: INTRAOCULAR PRESSURE INCREASED
     Dosage: LAST COUPLE OF YEARS, TWICE A DAY INTO THE RIGHT EYE. PROBABLY ONE DROP TWICE A DAY (NOT SURE)
     Route: 047
  2. TIMOPTIC [Suspect]
     Active Substance: TIMOLOL MALEATE
     Indication: INTRAOCULAR PRESSURE INCREASED
     Dosage: LAST COUPLE OF YEARS, TWICE A DAY INTO THE RIGHT EYE. PROBABLY ONE DROP TWICE A DAY (NOT SURE)
     Route: 047
  3. LOTEMAX [Suspect]
     Active Substance: LOTEPREDNOL ETABONATE
     Indication: PRODUCT USE IN UNAPPROVED INDICATION

REACTIONS (7)
  - Rectal cancer [Unknown]
  - Blindness unilateral [Recovered/Resolved]
  - Embolism [Unknown]
  - Lung neoplasm malignant [Unknown]
  - Colon cancer [Unknown]
  - Product use in unapproved indication [Unknown]
  - Death [Fatal]

NARRATIVE: CASE EVENT DATE: 201906
